FAERS Safety Report 11564986 (Version 1)
Quarter: 2015Q3

REPORT INFORMATION
  Report Type: Report from Study
  Country: US (occurrence: US)
  Receive Date: 20150928
  Receipt Date: 20150928
  Transmission Date: 20151125
  Serious: No
  Sender: FDA-Public Use
  Company Number: US-EXELIXIS-CABO-14004902

PATIENT
  Sex: Female

DRUGS (8)
  1. COMETRIQ [Suspect]
     Active Substance: CABOZANTINIB S-MALATE
     Indication: THYROID CANCER
     Dosage: 140 MG, QD
     Route: 048
     Dates: start: 20141020, end: 20141026
  2. OMEPRAZOLE. [Concomitant]
     Active Substance: OMEPRAZOLE
  3. VIT B 12 [Concomitant]
  4. LEVOTHYROXINE. [Concomitant]
     Active Substance: LEVOTHYROXINE
  5. COMETRIQ [Suspect]
     Active Substance: CABOZANTINIB S-MALATE
     Dosage: 100 MG, QD
     Route: 048
     Dates: start: 20141104, end: 20141105
  6. COMETRIQ [Suspect]
     Active Substance: CABOZANTINIB S-MALATE
     Dosage: 80 MG, QOD
     Route: 048
     Dates: start: 20150529
  7. COMETRIQ [Suspect]
     Active Substance: CABOZANTINIB S-MALATE
     Dosage: 100 MG, EVERY OTHER DAY
     Route: 048
     Dates: start: 20141215
  8. COMETRIQ [Suspect]
     Active Substance: CABOZANTINIB S-MALATE
     Dosage: 100 MG, QD
     Route: 048
     Dates: start: 201507

REACTIONS (24)
  - Decreased appetite [Unknown]
  - Increased tendency to bruise [Unknown]
  - Cough [Not Recovered/Not Resolved]
  - Abdominal pain upper [Not Recovered/Not Resolved]
  - Weight decreased [Not Recovered/Not Resolved]
  - Gastric pH decreased [Unknown]
  - Vomiting [Not Recovered/Not Resolved]
  - Fatigue [Not Recovered/Not Resolved]
  - Asthenia [Unknown]
  - Rash [Unknown]
  - Balance disorder [Not Recovered/Not Resolved]
  - Oropharyngeal pain [Unknown]
  - Vascular malformation [Unknown]
  - Dizziness [Unknown]
  - Dysphagia [Unknown]
  - Dyspepsia [Recovered/Resolved]
  - Blister [Unknown]
  - Malaise [Unknown]
  - Stomatitis [Unknown]
  - Foreign body [Unknown]
  - Pharyngeal oedema [Unknown]
  - Epistaxis [Not Recovered/Not Resolved]
  - Constipation [Unknown]
  - Tooth discolouration [Unknown]
